FAERS Safety Report 4302289-6 (Version None)
Quarter: 2004Q1

REPORT INFORMATION
  Report Type: 
  Country: None (occurrence: None)
  Receive Date: 20040223
  Receipt Date: 20011127
  Transmission Date: 20041129
  Serious: Yes (Congenital Anomaly)
  Sender: FDA-Public Use
  Company Number: WAES 01113397

PATIENT
  Sex: Male
  Weight: 4 kg

DRUGS (3)
  1. ALLEGRA [Concomitant]
  2. CLARITIN [Concomitant]
  3. SINGULAIR [Suspect]
     Indication: ASTHMA
     Dates: start: 20000101

REACTIONS (4)
  - CHORDEE [None]
  - COMPLICATIONS OF MATERNAL EXPOSURE TO THERAPEUTIC DRUGS [None]
  - MATERNAL DRUGS AFFECTING FOETUS [None]
  - PREGNANCY [None]
